FAERS Safety Report 18513899 (Version 2)
Quarter: 2020Q4

REPORT INFORMATION
  Report Type: Report from Study
  Country: None (occurrence: US)
  Receive Date: 20201118
  Receipt Date: 20201204
  Transmission Date: 20210114
  Serious: Yes (Hospitalization, Other)
  Sender: FDA-Public Use
  Company Number: US-ABBVIE-20K-163-3652804-00

PATIENT
  Sex: Female

DRUGS (1)
  1. IMBRUVICA [Suspect]
     Active Substance: IBRUTINIB
     Indication: CHRONIC LYMPHOCYTIC LEUKAEMIA
     Route: 048
     Dates: start: 20160202

REACTIONS (6)
  - Asthenia [Unknown]
  - Head injury [Unknown]
  - Near death experience [Unknown]
  - Therapeutic product effect decreased [Unknown]
  - Fall [Unknown]
  - Cerebral haemorrhage [Unknown]
